FAERS Safety Report 11576829 (Version 3)
Quarter: 2015Q4

REPORT INFORMATION
  Report Type: Spontaneous
  Country: US (occurrence: US)
  Receive Date: 20150930
  Receipt Date: 20151016
  Transmission Date: 20160304
  Serious: Yes (Death, Hospitalization)
  Sender: FDA-Public Use
  Company Number: US-ACTELION-A-NJ2015-124601

PATIENT
  Age: 39 Year
  Sex: Female

DRUGS (7)
  1. VIRODIN [Concomitant]
  2. SILDENAFIL. [Concomitant]
     Active Substance: SILDENAFIL
  3. FLUTICASONE [Concomitant]
     Active Substance: FLUTICASONE\FLUTICASONE PROPIONATE
  4. MULTIVITAMIN [Concomitant]
     Active Substance: VITAMINS
  5. OPSUMIT [Suspect]
     Active Substance: MACITENTAN
     Indication: PULMONARY ARTERIAL HYPERTENSION
     Dosage: 10 MG, UNK
     Route: 048
     Dates: start: 20150430
  6. DULOXETINE. [Concomitant]
     Active Substance: DULOXETINE
  7. VENTOLIN [Concomitant]
     Active Substance: ALBUTEROL SULFATE

REACTIONS (6)
  - Hypotension [Unknown]
  - Unresponsive to stimuli [Unknown]
  - Respiratory failure [Unknown]
  - Pulmonary arterial hypertension [Fatal]
  - Disease progression [Fatal]
  - Oedema peripheral [Unknown]
